FAERS Safety Report 20110868 (Version 1)
Quarter: 2021Q4

REPORT INFORMATION
  Report Type: Spontaneous
  Country: CA (occurrence: CA)
  Receive Date: 20211124
  Receipt Date: 20211124
  Transmission Date: 20220303
  Serious: Yes (Other)
  Sender: FDA-Public Use
  Company Number: CA-SA-SAC20211119000351

PATIENT
  Age: 57 Year
  Sex: Female

DRUGS (26)
  1. HYDROXYCHLOROQUINE SULFATE [Suspect]
     Active Substance: HYDROXYCHLOROQUINE SULFATE
  2. AMITRIPTYLINE HYDROCHLORIDE [Suspect]
     Active Substance: AMITRIPTYLINE HYDROCHLORIDE
  3. AZATHIOPRINE [Suspect]
     Active Substance: AZATHIOPRINE
  4. FERROUS FUMARATE [Suspect]
     Active Substance: FERROUS FUMARATE
  5. LEFLUNOMIDE [Suspect]
     Active Substance: LEFLUNOMIDE
  6. METHOTREXATE [Suspect]
     Active Substance: METHOTREXATE
  7. SULFASALAZINE [Suspect]
     Active Substance: SULFASALAZINE
  8. TRAMADOL HYDROCHLORIDE [Suspect]
     Active Substance: TRAMADOL HYDROCHLORIDE
  9. ACETAMINOPHEN\OXYCODONE HYDROCHLORIDE [Concomitant]
     Active Substance: ACETAMINOPHEN\OXYCODONE HYDROCHLORIDE
  10. ACETYLSALICYLIC ACID;BUTALBITAL;CAFFEINE;CODEINE [Concomitant]
  11. ARTHROTEC [Concomitant]
     Active Substance: DICLOFENAC SODIUM\MISOPROSTOL
     Indication: Inflammation
  12. ARTHROTEC [Concomitant]
     Active Substance: DICLOFENAC SODIUM\MISOPROSTOL
     Indication: Osteoarthritis
  13. .ALPHA.-TOCOPHEROL, DL- [Concomitant]
     Active Substance: .ALPHA.-TOCOPHEROL, DL-
  14. DILTIAZEM [Concomitant]
     Active Substance: DILTIAZEM
  15. ERGOCALCIFEROL [Concomitant]
     Active Substance: ERGOCALCIFEROL
  16. FOLIC ACID [Concomitant]
     Active Substance: FOLIC ACID
  17. HYDROCHLOROTHIAZIDE [Concomitant]
     Active Substance: HYDROCHLOROTHIAZIDE
  18. MAXALT [Concomitant]
     Active Substance: RIZATRIPTAN BENZOATE
     Indication: Migraine
  19. MYCOPHENOLATE MOFETIL [Concomitant]
     Active Substance: MYCOPHENOLATE MOFETIL
  20. PREDNISONE [Concomitant]
     Active Substance: PREDNISONE
     Indication: Inflammation
  21. PREDNISONE [Concomitant]
     Active Substance: PREDNISONE
     Indication: Systemic lupus erythematosus
  22. SULFASALAZINE [Concomitant]
     Active Substance: SULFASALAZINE
  23. TEMAZEPAM [Concomitant]
     Active Substance: TEMAZEPAM
  24. TOPIRAMATE [Concomitant]
     Active Substance: TOPIRAMATE
  25. TRAMADOL HYDROCHLORIDE [Concomitant]
     Active Substance: TRAMADOL HYDROCHLORIDE
  26. VITAMIN D3 [Concomitant]
     Active Substance: CHOLECALCIFEROL

REACTIONS (20)
  - Alanine aminotransferase increased [Recovered/Resolved]
  - Aphthous ulcer [Recovered/Resolved]
  - Back pain [Recovered/Resolved]
  - Constipation [Recovered/Resolved]
  - Depression [Recovered/Resolved]
  - Dysgeusia [Recovered/Resolved]
  - Facial pain [Recovered/Resolved]
  - Fibromyalgia [Recovered/Resolved]
  - Inflammation [Recovered/Resolved]
  - Liver function test increased [Recovered/Resolved]
  - Malaise [Recovered/Resolved]
  - Migraine [Recovered/Resolved]
  - Neuropathy peripheral [Recovered/Resolved]
  - Osteoarthritis [Recovered/Resolved]
  - Paraesthesia [Recovered/Resolved]
  - Photosensitivity reaction [Recovered/Resolved]
  - Polyarthritis [Recovered/Resolved]
  - Road traffic accident [Recovered/Resolved]
  - Systemic lupus erythematosus [Recovered/Resolved]
  - Therapeutic response decreased [Recovered/Resolved]
